FAERS Safety Report 15104318 (Version 1)
Quarter: 2018Q3

REPORT INFORMATION
  Report Type: Spontaneous
  Country: US (occurrence: US)
  Receive Date: 20180703
  Receipt Date: 20180703
  Transmission Date: 20181010
  Serious: No
  Sender: FDA-Public Use
  Company Number: US-VIFOR (INTERNATIONAL) INC.-VIT-2018-06523

PATIENT
  Sex: Male

DRUGS (8)
  1. ERGOCALCIFEROL. [Concomitant]
     Active Substance: ERGOCALCIFEROL
  2. ERGOCALCIFEROL~~ASCORBIC ACID~~TOCOPHEROL~~FOLIC ACID~~RETINOL~~VITAMIN B NOS [Concomitant]
  3. VELTASSA [Suspect]
     Active Substance: PATIROMER
     Indication: HYPERKALAEMIA
     Route: 048
     Dates: start: 20160628
  4. LOSARTAN POTASSIUM. [Concomitant]
     Active Substance: LOSARTAN POTASSIUM
  5. FUROSEMIDE. [Concomitant]
     Active Substance: FUROSEMIDE
  6. ZANTAC [Concomitant]
     Active Substance: RANITIDINE HYDROCHLORIDE
  7. MANGANESE~~CHONDROITIN SULFATE~~GLUCOSAMINE SULFATE~~CITROFLAVONOID [Concomitant]
  8. FOLIC ACID. [Concomitant]
     Active Substance: FOLIC ACID

REACTIONS (1)
  - Living in residential institution [Unknown]
